FAERS Safety Report 4512237-1 (Version None)
Quarter: 2004Q4

REPORT INFORMATION
  Report Type: 
  Country: None (occurrence: None)
  Receive Date: 20041123
  Receipt Date: 20041115
  Transmission Date: 20050328
  Serious: Yes (Hospitalization, Other)
  Sender: FDA-Public Use
  Company Number: 001-0719-M0200013

PATIENT
  Sex: Male

DRUGS (27)
  1. LOPID [Suspect]
     Indication: BLOOD CHOLESTEROL INCREASED
     Dosage: 600 MG, ORAL
     Route: 048
     Dates: start: 20000301
  2. CERIVASTATIN (CERIVASTATIN) [Suspect]
     Indication: HYPERLIPIDAEMIA
     Dosage: 0.4 MG, ORAL
     Route: 048
     Dates: start: 20001120, end: 20010701
  3. OMEPRAZOLE [Concomitant]
  4. FLUOXETINE HYDROCHLORIDE [Concomitant]
  5. ALPRAZOLAM [Concomitant]
  6. ATENOLOL [Concomitant]
  7. DIGOXIN [Concomitant]
  8. POTASSIUM CHLORIDE [Concomitant]
  9. LISINOPRIL [Concomitant]
  10. ZOLPIDEM TARTRATE [Concomitant]
  11. BUMETANIDE [Concomitant]
  12. METHADONE (METHADONE) [Concomitant]
  13. NITROGLYCERIN [Concomitant]
  14. IMIPRAMINE [Concomitant]
  15. CLARITHROMYCIN [Concomitant]
  16. BACLOFEN [Concomitant]
  17. DICYCLOVERINE (DICYCLOVERINE) [Concomitant]
  18. SALBUTAMOL (SALBUTAMOL) [Concomitant]
  19. FLUTICASONE PROPIONATE [Concomitant]
  20. NEFAZODONE HCL [Concomitant]
  21. LEVOFLOXACIN [Concomitant]
  22. ROFECOXIB [Concomitant]
  23. DIAZEPAM [Concomitant]
  24. PRAVASTATIN SODIUM [Concomitant]
  25. TAMSULOSIN (TAMSULOSIN) [Concomitant]
  26. TRAMADOL HCL [Concomitant]
  27. HYDROCODONE (HYDROCODONE) [Concomitant]

REACTIONS (12)
  - ARTHRALGIA [None]
  - ASTHENIA [None]
  - BLOOD URINE PRESENT [None]
  - FEELING ABNORMAL [None]
  - GASTRIC DISORDER [None]
  - MEDICATION ERROR [None]
  - NAUSEA [None]
  - PAIN [None]
  - PYREXIA [None]
  - RHABDOMYOLYSIS [None]
  - STAPHYLOCOCCAL SEPSIS [None]
  - URINARY RETENTION [None]
